FAERS Safety Report 14348612 (Version 1)
Quarter: 2018Q1

REPORT INFORMATION
  Report Type: Spontaneous
  Country: PL (occurrence: PL)
  Receive Date: 20180103
  Receipt Date: 20180103
  Transmission Date: 20180509
  Serious: Yes (Other)
  Sender: FDA-Public Use
  Company Number: PL-BAXTER-2017BAX044220

PATIENT
  Age: 75 Year
  Sex: Male

DRUGS (2)
  1. PHOXILIUM [Suspect]
     Active Substance: CALCIUM CL\MAGNESIUM CL\POTASSIUM CL\SODIUM BICAR\SODIUM CL\SODIUM PHOSPHATE,DIB
     Indication: CONTINUOUS HAEMODIAFILTRATION
     Route: 010
  2. PRISM0CAL B22 [Suspect]
     Active Substance: BICARBONATE ION\CHLORIDE ION\DEXTROSE\LACTIC ACID\MAGNESIUM\POTASSIUM
     Indication: CONTINUOUS HAEMODIAFILTRATION
     Route: 010

REACTIONS (1)
  - Haemorrhage [Unknown]
